FAERS Safety Report 24584771 (Version 4)
Quarter: 2025Q3

REPORT INFORMATION
  Report Type: Spontaneous
  Country: JP (occurrence: JP)
  Receive Date: 20241106
  Receipt Date: 20250825
  Transmission Date: 20251020
  Serious: Yes (Hospitalization, Other)
  Sender: ROCHE
  Company Number: JP-CHUGAI-2024038421AA

PATIENT
  Age: 64 Year
  Sex: Female

DRUGS (2)
  1. GAZYVA [Suspect]
     Active Substance: OBINUTUZUMAB
     Indication: Follicular lymphoma
     Route: 042
     Dates: start: 2021
  2. BENDAMUSTINE HYDROCHLORIDE [Concomitant]
     Active Substance: BENDAMUSTINE HYDROCHLORIDE
     Indication: Follicular lymphoma
     Route: 042
     Dates: start: 2021

REACTIONS (8)
  - Acute myeloid leukaemia [Recovering/Resolving]
  - Myelodysplastic syndrome [Unknown]
  - Liver disorder [Unknown]
  - Cytomegalovirus infection [Unknown]
  - Cytomegalovirus chorioretinitis [Unknown]
  - Cytomegalovirus enterocolitis [Unknown]
  - Haemophagocytic lymphohistiocytosis [Recovered/Resolved]
  - Chronic graft versus host disease [Recovering/Resolving]

NARRATIVE: CASE EVENT DATE: 20240101
